FAERS Safety Report 4387598-7 (Version None)
Quarter: 2004Q2

REPORT INFORMATION
  Report Type: 
  Country: None (occurrence: None)
  Receive Date: 20040630
  Receipt Date: 20040517
  Transmission Date: 20050107
  Serious: No
  Sender: FDA-Public Use
  Company Number: US-GLAXOSMITHKLINE-A0511104A

PATIENT
  Age: 69 Year
  Sex: Male

DRUGS (11)
  1. ADVAIR HFA [Suspect]
     Indication: COUGH
     Dosage: 1BLS TWICE PER DAY
     Route: 055
     Dates: start: 20040220
  2. BIOHIST [Concomitant]
  3. COZAAR [Concomitant]
  4. TRIMETHOPRIM [Concomitant]
  5. ZOCOR [Concomitant]
  6. PLAVIX [Concomitant]
  7. GLUCOTROL XL [Concomitant]
  8. TOPROL-XL [Concomitant]
  9. DETROL [Concomitant]
  10. ASPIRIN [Concomitant]
  11. ALEVE [Concomitant]

REACTIONS (4)
  - APHONIA [None]
  - COUGH [None]
  - DRUG INEFFECTIVE [None]
  - PHARMACEUTICAL PRODUCT COMPLAINT [None]
